FAERS Safety Report 17840164 (Version 2)
Quarter: 2020Q3

REPORT INFORMATION
  Report Type: Report from Study
  Country: US (occurrence: US)
  Receive Date: 20200529
  Receipt Date: 20200715
  Transmission Date: 20201103
  Serious: Yes (Other)
  Sender: FDA-Public Use
  Company Number: NVSC2020US148419

PATIENT
  Age: 73 Year
  Sex: Male

DRUGS (1)
  1. KYMRIAH [Suspect]
     Active Substance: TISAGENLECLEUCEL
     Indication: NON-HODGKIN^S LYMPHOMA
     Dosage: 4.1E8 CART POSITIVE VIABLE CELLS
     Route: 065

REACTIONS (2)
  - Hodgkin^s disease [Unknown]
  - Out of specification test results [Unknown]
